FAERS Safety Report 4376354-1 (Version None)
Quarter: 2004Q2

REPORT INFORMATION
  Report Type: 
  Country: None (occurrence: None)
  Receive Date: 20040612
  Receipt Date: 20040602
  Transmission Date: 20050107
  Serious: Yes (Hospitalization)
  Sender: FDA-Public Use
  Company Number: CA-JNJFOC-20040601273

PATIENT
  Sex: Male
  Weight: 92.99 kg

DRUGS (16)
  1. REMICADE [Suspect]
     Indication: DRUG USE FOR UNKNOWN INDICATION
     Route: 042
  2. PREDNISONE [Concomitant]
     Route: 049
  3. ARAVA [Concomitant]
     Route: 049
  4. AMITRIPTYLINE HCL [Concomitant]
     Route: 049
  5. AVANDIA [Concomitant]
     Route: 049
  6. GLYBURIDE [Concomitant]
     Route: 049
  7. FLOMAX [Concomitant]
     Route: 049
  8. NOVASEN [Concomitant]
     Route: 049
  9. METFORMIN HCL [Concomitant]
     Route: 049
  10. PANTOLOC [Concomitant]
     Route: 049
  11. ALTACE [Concomitant]
     Route: 049
  12. VITAMIN B3 [Concomitant]
     Route: 049
  13. VITAMIN B3 [Concomitant]
     Route: 049
  14. VITAMIN B3 [Concomitant]
     Route: 049
  15. VITAMIN B3 [Concomitant]
     Route: 049
  16. VITAMIN B3 [Concomitant]
     Route: 049

REACTIONS (5)
  - ARTHRITIS [None]
  - CHEST PAIN [None]
  - EYE HAEMORRHAGE [None]
  - PAIN [None]
  - PAIN IN JAW [None]
